FAERS Safety Report 8258980-2 (Version None)
Quarter: 2012Q2

REPORT INFORMATION
  Report Type: 
  Country: None (occurrence: None)
  Receive Date: 20120404
  Receipt Date: 20120326
  Transmission Date: 20120825
  Serious: Yes (Hospitalization)
  Sender: FDA-Public Use
  Company Number: FR-ASTRAZENECA-2011SE65211

PATIENT
  Age: 27069 Day
  Sex: Female

DRUGS (10)
  1. ESIDRIX [Suspect]
     Route: 048
  2. LISINOPRIL [Suspect]
     Route: 048
  3. LORAZEPAM [Suspect]
     Route: 048
  4. NEXIUM [Suspect]
     Route: 048
  5. LEPTICUR [Suspect]
     Route: 048
  6. ZOLPIDEM TARTRATE [Concomitant]
  7. XANAX [Suspect]
     Route: 048
  8. DEPAKOTE [Suspect]
     Route: 048
  9. ATENOLOL [Concomitant]
  10. HALDOL [Suspect]

REACTIONS (5)
  - HYPOTHERMIA [None]
  - FALL [None]
  - BUNDLE BRANCH BLOCK LEFT [None]
  - ATRIOVENTRICULAR BLOCK [None]
  - ECCHYMOSIS [None]
